FAERS Safety Report 5895078-2 (Version None)
Quarter: 2008Q3

REPORT INFORMATION
  Report Type: 
  Country: None (occurrence: None)
  Receive Date: 20080924
  Receipt Date: 20080911
  Transmission Date: 20090109
  Serious: Yes (Hospitalization)
  Sender: FDA-Public Use
  Company Number: US-PFIZER INC-2008073026

PATIENT
  Sex: Female
  Weight: 62.727 kg

DRUGS (2)
  1. CHANTIX [Suspect]
     Indication: EX-TOBACCO USER
     Route: 048
     Dates: start: 20080820
  2. TOPROL-XL [Concomitant]

REACTIONS (2)
  - APNOEA [None]
  - CHEST PAIN [None]
